FAERS Safety Report 8051968-6 (Version None)
Quarter: 2012Q1

REPORT INFORMATION
  Report Type: 
  Country: None (occurrence: None)
  Receive Date: 20120118
  Receipt Date: 20120112
  Transmission Date: 20120608
  Serious: No
  Sender: FDA-Public Use
  Company Number: US-JNJFOC-20120104838

PATIENT
  Sex: Male

DRUGS (2)
  1. INVEGA SUSTENNA [Suspect]
     Indication: SCHIZOPHRENIA
     Route: 030
  2. KEPPRA [Concomitant]
     Indication: CONVULSION
     Route: 065

REACTIONS (3)
  - TACHYPHRENIA [None]
  - FATIGUE [None]
  - INSOMNIA [None]
